FAERS Safety Report 13016837 (Version 1)
Quarter: 2016Q4

REPORT INFORMATION
  Report Type: Spontaneous
  Country: US (occurrence: US)
  Receive Date: 20161208
  Receipt Date: 20161208
  Transmission Date: 20170207
  Serious: Yes (Other)
  Sender: FDA-Public Use
  Company Number: None

PATIENT
  Age: 32 Year
  Sex: Female

DRUGS (1)
  1. BOTOX [Suspect]
     Active Substance: ONABOTULINUMTOXINA
     Indication: MIGRAINE
     Dosage: 200 UNITS EVERY 12 WEEKS INTRAMUSCULAR
     Route: 030
     Dates: start: 201211

REACTIONS (3)
  - Pregnancy [None]
  - Muscle spasms [None]
  - Foetal growth abnormality [None]
